FAERS Safety Report 24454571 (Version 2)
Quarter: 2024Q4

REPORT INFORMATION
  Report Type: Report from Study
  Country: FR (occurrence: FR)
  Receive Date: 20241017
  Receipt Date: 20241018
  Transmission Date: 20250115
  Serious: No
  Sender: ROCHE
  Company Number: FR-ROCHE-3470386

PATIENT

DRUGS (4)
  1. RITUXIMAB [Suspect]
     Active Substance: RITUXIMAB
     Indication: Multiple sclerosis
     Dosage: INDUCTION DOSE OF 1000 MILLIGRAMS (MG) OR TWO DOSES OF 1000 MILLIGRAMS FOLLOWED BY A SINGLE DOSE
     Route: 065
  2. OCRELIZUMAB [Suspect]
     Active Substance: OCRELIZUMAB
     Indication: Multiple sclerosis
     Route: 065
  3. OCRELIZUMAB [Suspect]
     Active Substance: OCRELIZUMAB
     Route: 065
  4. FINGOLIMOD [Concomitant]
     Active Substance: FINGOLIMOD

REACTIONS (2)
  - Infection [Unknown]
  - Off label use [Unknown]
